FAERS Safety Report 8028832-1 (Version None)
Quarter: 2012Q1

REPORT INFORMATION
  Report Type: 
  Country: None (occurrence: None)
  Receive Date: 20120106
  Receipt Date: 20120102
  Transmission Date: 20120608
  Serious: Yes (Hospitalization)
  Sender: FDA-Public Use
  Company Number: FR-SANOFI-AVENTIS-2012SA000413

PATIENT
  Age: 95 Year
  Sex: Male

DRUGS (3)
  1. LASIX [Suspect]
     Route: 048
     Dates: end: 20110922
  2. BISOPROLOL FUMARATE [Suspect]
     Route: 065
     Dates: end: 20110922
  3. AMLODIPINE BESYLATE [Concomitant]
     Route: 065

REACTIONS (1)
  - BRADYCARDIA [None]
